FAERS Safety Report 6387669-X (Version None)
Quarter: 2009Q4

REPORT INFORMATION
  Report Type: 
  Country: None (occurrence: None)
  Receive Date: 20091005
  Receipt Date: 20090925
  Transmission Date: 20100525
  Serious: Yes (Hospitalization)
  Sender: FDA-Public Use
  Company Number: IT-ABBOTT-09P-083-0597369-00

PATIENT
  Sex: Female
  Weight: 76 kg

DRUGS (3)
  1. KLACID TABLETS [Suspect]
     Indication: OROPHARYNGEAL PAIN
     Route: 048
     Dates: start: 20090830, end: 20090830
  2. ATENOL [Concomitant]
     Indication: DRUG USE FOR UNKNOWN INDICATION
     Dosage: 25MG DAILY
     Route: 048
  3. EUTIROX [Concomitant]
     Indication: DRUG USE FOR UNKNOWN INDICATION
     Dosage: 100MG DAILY
     Route: 048

REACTIONS (1)
  - SWOLLEN TONGUE [None]
